FAERS Safety Report 8308310-2 (Version None)
Quarter: 2012Q2

REPORT INFORMATION
  Report Type: 
  Country: None (occurrence: None)
  Receive Date: 20120419
  Receipt Date: 20120406
  Transmission Date: 20120825
  Serious: No
  Sender: FDA-Public Use
  Company Number: B0794276A

PATIENT

DRUGS (1)
  1. RANITIDINE HYDROCHLORIDE [Suspect]
     Indication: ANAESTHETIC PREMEDICATION
     Dosage: INTRAVENOUS
     Route: 042

REACTIONS (3)
  - VOMITING [None]
  - RASH [None]
  - SHOCK [None]
